FAERS Safety Report 7054716-1 (Version None)
Quarter: 2010Q4

REPORT INFORMATION
  Report Type: 
  Country: None (occurrence: None)
  Receive Date: 20101015
  Receipt Date: 20101006
  Transmission Date: 20110411
  Serious: Yes (Other)
  Sender: FDA-Public Use
  Company Number: 20109398

PATIENT
  Sex: Female

DRUGS (1)
  1. LIORESAL [Suspect]
     Indication: MUSCLE SPASTICITY
     Dosage: DAILY, INTRATHECAL
     Route: 037

REACTIONS (13)
  - BEDRIDDEN [None]
  - DEPRESSED LEVEL OF CONSCIOUSNESS [None]
  - DEVICE LEAKAGE [None]
  - DRUG TOXICITY [None]
  - DYSARTHRIA [None]
  - FALL [None]
  - HEADACHE [None]
  - HYPOTENSION [None]
  - HYPOTONIA [None]
  - INCONTINENCE [None]
  - NAUSEA [None]
  - OVERDOSE [None]
  - UNRESPONSIVE TO STIMULI [None]
